FAERS Safety Report 7375100-7 (Version None)
Quarter: 2011Q1

REPORT INFORMATION
  Report Type: 
  Country: None (occurrence: None)
  Receive Date: 20110315
  Receipt Date: 20110304
  Transmission Date: 20110831
  Serious: Yes (Other)
  Sender: FDA-Public Use
  Company Number: 2011MA002241

PATIENT
  Age: 56 Year
  Sex: Female

DRUGS (4)
  1. CALCIUM [Concomitant]
  2. MIRTAZAPINE [Suspect]
     Indication: DEPRESSION
     Dosage: 30 MG; ; PO
     Route: 048
     Dates: end: 20110217
  3. MIRTAZAPINE [Suspect]
     Indication: DEPRESSION
     Dosage: 30 MG; ; PO
     Route: 048
     Dates: end: 20110217
  4. MIRTAZAPINE [Suspect]
     Indication: DEPRESSION
     Dosage: 30 MG; ; PO
     Route: 048
     Dates: end: 20110217

REACTIONS (4)
  - PHOBIA [None]
  - ATAXIA [None]
  - POSITIVE ROMBERGISM [None]
  - FALL [None]
